FAERS Safety Report 15530381 (Version 1)
Quarter: 2018Q4

REPORT INFORMATION
  Report Type: Spontaneous
  Country: US (occurrence: US)
  Receive Date: 20181018
  Receipt Date: 20181018
  Transmission Date: 20190205
  Serious: Yes (Life-Threatening, Hospitalization)
  Sender: FDA-Public Use
  Company Number: US-TEVA-2018-US-963664

PATIENT
  Age: 25 Year
  Sex: Female
  Weight: 111 kg

DRUGS (8)
  1. SODIUM BICARBONATE. [Suspect]
     Active Substance: SODIUM BICARBONATE
     Indication: BUNDLE BRANCH BLOCK LEFT
     Dosage: REPEATED BOLUSES OF BICARBONATE
     Route: 050
  2. LAMOTRIGINE. [Suspect]
     Active Substance: LAMOTRIGINE
     Route: 048
  3. SODIUM BICARBONATE. [Suspect]
     Active Substance: SODIUM BICARBONATE
     Indication: BUNDLE BRANCH BLOCK LEFT
     Dosage: AN ADDITIONAL 100 MEQ OF SODIUM BICARBONATE WAS ALSO GIVEN
     Route: 065
  4. PROPOFOL. [Concomitant]
     Active Substance: PROPOFOL
     Route: 065
  5. SODIUM BICARBONATE. [Suspect]
     Active Substance: SODIUM BICARBONATE
     Indication: BUNDLE BRANCH BLOCK LEFT
     Dosage: INFUSION
     Route: 050
  6. ESCITALOPRAM [Suspect]
     Active Substance: ESCITALOPRAM OXALATE
     Route: 048
  7. SODIUM BICARBONATE. [Suspect]
     Active Substance: SODIUM BICARBONATE
     Indication: BUNDLE BRANCH BLOCK LEFT
     Dosage: INCREASE IN THE INFUSION RATE
     Route: 050
  8. MIDAZOLAM [Concomitant]
     Active Substance: MIDAZOLAM HYDROCHLORIDE
     Route: 065

REACTIONS (8)
  - Overdose [Recovered/Resolved]
  - Pneumonia aspiration [Recovered/Resolved]
  - Serotonin syndrome [Unknown]
  - Electrocardiogram QRS complex prolonged [Recovered/Resolved]
  - Rhabdomyolysis [Unknown]
  - Acute respiratory distress syndrome [Recovered/Resolved]
  - Bundle branch block left [Recovered/Resolved]
  - Drug ineffective [Unknown]
